FAERS Safety Report 19395815 (Version 2)
Quarter: 2021Q3

REPORT INFORMATION
  Report Type: Spontaneous
  Country: US (occurrence: US)
  Receive Date: 20210609
  Receipt Date: 20210825
  Transmission Date: 20211014
  Serious: No
  Sender: FDA-Public Use
  Company Number: US-MYLANLABS-2021M1030550

PATIENT
  Sex: Female

DRUGS (2)
  1. LEVONORGESTREL AND ETHINYL ESTRADIOL TABLETS, USP [Suspect]
     Active Substance: ETHINYL ESTRADIOL\LEVONORGESTREL
     Indication: CONTRACEPTION
     Dosage: 1 DOSAGE FORM, QD, ONE EVERY DAY
  2. MARLISSA [Suspect]
     Active Substance: ETHINYL ESTRADIOL\LEVONORGESTREL
     Indication: CONTRACEPTION
     Dosage: UNK

REACTIONS (3)
  - Product quality issue [Not Recovered/Not Resolved]
  - Product label issue [Unknown]
  - Incorrect dose administered [Not Recovered/Not Resolved]
